FAERS Safety Report 7884969-9 (Version None)
Quarter: 2011Q4

REPORT INFORMATION
  Report Type: 
  Country: None (occurrence: None)
  Receive Date: 20111102
  Receipt Date: 20111025
  Transmission Date: 20120403
  Serious: Yes (Hospitalization)
  Sender: FDA-Public Use
  Company Number: JP-PURDUE-MAG-2011-0001644

PATIENT
  Sex: Female

DRUGS (26)
  1. OXYCODONE HCL [Suspect]
     Dosage: 200 MG, UNK
     Route: 048
     Dates: start: 20110317, end: 20110318
  2. OXYCODONE HCL [Suspect]
     Dosage: 160 MG, UNK
     Route: 048
     Dates: start: 20110318, end: 20110319
  3. OXYCODONE HCL [Suspect]
     Dosage: 30 MG, DAILY
     Route: 048
     Dates: start: 20110317, end: 20110318
  4. RABEPRAZOLE SODIUM [Concomitant]
     Indication: PROPHYLAXIS
     Dosage: UNK
     Route: 048
     Dates: end: 20110428
  5. CISPLATIN [Concomitant]
     Indication: UTERINE CANCER
     Dosage: UNK
     Dates: end: 20110419
  6. OXYCODONE HCL [Suspect]
     Dosage: 30 MG, DAILY
     Route: 048
     Dates: start: 20110319, end: 20110419
  7. OXYCODONE HCL [Suspect]
     Dosage: 5 MG, UNK
     Route: 048
     Dates: start: 20110318, end: 20110319
  8. MIROBECT [Concomitant]
     Dosage: UNK
     Route: 065
     Dates: end: 20110428
  9. PRIMPERAN TAB [Concomitant]
     Indication: PROPHYLAXIS
     Dosage: UNK
     Route: 065
     Dates: start: 20110504, end: 20110504
  10. DOXORUBICIN HCL [Concomitant]
     Indication: UTERINE CANCER
     Dosage: UNK
     Dates: end: 20110419
  11. MAGNESIUM SULFATE [Concomitant]
     Indication: PROPHYLAXIS
     Dosage: UNK
     Route: 048
     Dates: end: 20110428
  12. OXYCODONE HCL [Suspect]
     Dosage: 240 MG, DAILY
     Route: 048
     Dates: start: 20110419, end: 20110425
  13. MOTILIUM [Concomitant]
     Indication: PROPHYLAXIS
     Dosage: UNK
     Route: 065
     Dates: end: 20110428
  14. ACETAMINOPHEN [Concomitant]
     Indication: CANCER PAIN
     Dosage: UNK
     Route: 048
     Dates: end: 20110428
  15. PAVINAL [Concomitant]
     Indication: CANCER PAIN
     Dosage: UNK
     Route: 042
     Dates: start: 20110425, end: 20110427
  16. LAXOBERON [Concomitant]
     Indication: PROPHYLAXIS
     Dosage: UNK
     Route: 048
     Dates: end: 20110428
  17. FENTANYL [Concomitant]
     Indication: CANCER PAIN
     Dosage: UNK
     Route: 065
     Dates: start: 20110427, end: 20110428
  18. OXYCODONE HCL [Suspect]
     Indication: CANCER PAIN
     Dosage: 40 MG, DAILY
     Route: 048
     Dates: start: 20110428, end: 20110502
  19. TRAVELMIN                          /00517301/ [Concomitant]
     Indication: PROPHYLAXIS
     Dosage: UNK
     Route: 065
     Dates: start: 20110504, end: 20110504
  20. OXYCODONE HCL [Suspect]
     Indication: CANCER PAIN
     Dosage: 240 MG, DAILY
     Dates: start: 20110428, end: 20110502
  21. OXYCODONE HCL [Suspect]
     Dosage: 40 MG, DAILY
     Route: 048
     Dates: start: 20110419, end: 20110425
  22. DEPAS [Concomitant]
     Indication: PROPHYLAXIS
     Dosage: UNK
     Route: 065
  23. OXYCODONE HCL [Suspect]
     Dosage: 200 MG, UNK
     Route: 048
     Dates: start: 20110319, end: 20110419
  24. ZYPREXA [Concomitant]
     Indication: PROPHYLAXIS OF NAUSEA AND VOMITING
     Dosage: UNK
     Route: 048
     Dates: start: 20110317, end: 20110324
  25. CLONAZEPAM [Concomitant]
     Indication: CANCER PAIN
     Dosage: UNK
     Route: 048
     Dates: start: 20110320, end: 20110501
  26. FENTANYL [Concomitant]
     Dosage: UNK
     Dates: start: 20110502, end: 20110505

REACTIONS (2)
  - ENTEROCOLITIS [None]
  - WHITE BLOOD CELL COUNT DECREASED [None]
